FAERS Safety Report 6294060-3 (Version None)
Quarter: 2009Q3

REPORT INFORMATION
  Report Type: 
  Country: None (occurrence: None)
  Receive Date: 20090803
  Receipt Date: 20080903
  Transmission Date: 20100115
  Serious: No
  Sender: FDA-Public Use
  Company Number: A0745891A

PATIENT
  Age: 65 Year
  Sex: Female

DRUGS (3)
  1. NICORETTE [Suspect]
  2. COMMIT [Suspect]
     Dates: start: 20080827
  3. NICODERM CQ [Suspect]

REACTIONS (3)
  - DRUG INEFFECTIVE [None]
  - HEADACHE [None]
  - INTENTIONAL DRUG MISUSE [None]
